FAERS Safety Report 9233567 (Version 1)
Quarter: 2013Q2

REPORT INFORMATION
  Report Type: Spontaneous
  Country: US (occurrence: None)
  Receive Date: 20130415
  Receipt Date: 20130415
  Transmission Date: 20140414
  Serious: Yes (Other)
  Sender: FDA-Public Use
  Company Number: None

PATIENT
  Age: 62 Year
  Sex: Male
  Weight: 74.84 kg

DRUGS (1)
  1. LAZANDA [Suspect]
     Indication: BREAKTHROUGH PAIN
     Dates: start: 20130321, end: 20130410

REACTIONS (4)
  - Device malfunction [None]
  - Speech disorder [None]
  - Cognitive disorder [None]
  - Overdose [None]
